FAERS Safety Report 24280648 (Version 1)
Quarter: 2024Q3

REPORT INFORMATION
  Report Type: Spontaneous
  Country: FR (occurrence: FR)
  Receive Date: 20240904
  Receipt Date: 20240904
  Transmission Date: 20241017
  Serious: Yes (Life-Threatening, Hospitalization)
  Sender: SANDOZ
  Company Number: FR-ROCHE-3473710

PATIENT
  Age: 73 Year
  Sex: Male
  Weight: 70 kg

DRUGS (36)
  1. ATEZOLIZUMAB [Suspect]
     Active Substance: ATEZOLIZUMAB
     Indication: Non-small cell lung cancer metastatic
     Dosage: ON 28/NOV/2023, RECEIVED MOST RECENT DOSE OF BLINDED ATEZOLIZUMAB BEFORE EVENT ONSET.
     Route: 042
     Dates: start: 20230822
  2. CARBOPLATIN [Suspect]
     Active Substance: CARBOPLATIN
     Indication: Non-small cell lung cancer metastatic
     Dosage: ON 07/NOV/2023, RECEIVED MOST RECENT DOSE OF CARBOPLATIN (400 MG) BEFORE EVENT ONSET.
     Route: 042
     Dates: start: 20230822
  3. PEMETREXED [Suspect]
     Active Substance: PEMETREXED
     Indication: Non-small cell lung cancer metastatic
     Dosage: ON 28/NOV/2023, RECEIVED MOST RECENT DOSE OF PEMETREXED (925 MG) BEFORE EVENT ONSET.
     Route: 042
     Dates: start: 20230822
  4. PEMBROLIZUMAB [Suspect]
     Active Substance: PEMBROLIZUMAB
     Indication: Non-small cell lung cancer metastatic
     Route: 042
  5. PEMBROLIZUMAB [Suspect]
     Active Substance: PEMBROLIZUMAB
     Dosage: ON 28/NOV/2023, RECEIVED MOST RECENT DOSE OF BLINDED PEMBROLIZUMAB BEFORE EVENT ONSET.
     Route: 042
     Dates: start: 20230822
  6. APIXABAN [Concomitant]
     Active Substance: APIXABAN
     Indication: Pulmonary embolism
     Dosage: 5.000MG
     Route: 048
     Dates: start: 202312
  7. ATORVASTATIN [Concomitant]
     Active Substance: ATORVASTATIN
     Indication: Product used for unknown indication
     Dosage: 80.000MG QD
     Route: 048
     Dates: start: 202401
  8. BISOPROLOL [Concomitant]
     Active Substance: BISOPROLOL\BISOPROLOL FUMARATE
     Indication: Product used for unknown indication
     Dosage: 5.000MG QD
     Route: 048
  9. CANDESARTAN [Concomitant]
     Active Substance: CANDESARTAN
     Indication: Hypertension
     Dosage: 8.000MG
     Route: 048
  10. DAPAGLIFLOZIN [Concomitant]
     Active Substance: DAPAGLIFLOZIN
     Indication: Product used for unknown indication
     Dosage: 10.000MG QD
     Route: 048
     Dates: start: 20231229
  11. EMEND [Concomitant]
     Active Substance: APREPITANT
     Indication: Product used for unknown indication
     Route: 048
  12. EUPANTOL [Concomitant]
     Active Substance: PANTOPRAZOLE SODIUM
     Indication: Product used for unknown indication
     Dosage: 40.000MG QD
     Route: 042
     Dates: start: 202312
  13. EZETIMIBE [Concomitant]
     Active Substance: EZETIMIBE
     Indication: Product used for unknown indication
     Dosage: 10.000MG QD
     Route: 048
     Dates: start: 202401
  14. FOLIC ACID [Concomitant]
     Active Substance: FOLIC ACID
     Indication: Product used for unknown indication
     Dosage: 0.400MG
     Route: 048
  15. FUROSEMIDE [Concomitant]
     Active Substance: FUROSEMIDE
     Indication: Product used for unknown indication
     Route: 065
     Dates: start: 20231211
  16. FUROSEMIDE [Concomitant]
     Active Substance: FUROSEMIDE
     Route: 065
     Dates: start: 20231211
  17. HEPARIN [Concomitant]
     Active Substance: HEPARIN SODIUM
     Indication: Pulmonary embolism
     Dosage: 25000.000IU QD
     Route: 042
     Dates: start: 20231208
  18. HYDROCORTISONE [Concomitant]
     Active Substance: HYDROCORTISONE\HYDROCORTISONE ACETATE
     Dosage: 10.000MG
     Route: 048
     Dates: start: 20240112
  19. HYDROCORTISONE [Concomitant]
     Active Substance: HYDROCORTISONE\HYDROCORTISONE ACETATE
     Indication: Hypophysitis
     Dosage: 30.000MG QD
     Route: 048
     Dates: start: 20240112
  20. HYDROCORTISONE [Concomitant]
     Active Substance: HYDROCORTISONE\HYDROCORTISONE ACETATE
     Dosage: 30.000MG QD
     Route: 048
     Dates: start: 20231010, end: 20231207
  21. KARDEGIC [Concomitant]
     Active Substance: ASPIRIN DL-LYSINE
     Dosage: 250.000MG QD
     Route: 065
     Dates: start: 20231208
  22. KARDEGIC [Concomitant]
     Active Substance: ASPIRIN DL-LYSINE
     Indication: Embolism
     Dosage: 75.000MG QD
     Route: 048
     Dates: start: 202312
  23. KARDEGIC [Concomitant]
     Active Substance: ASPIRIN DL-LYSINE
     Dosage: 75.000MG QD
     Route: 048
  24. LACTULOSE [Concomitant]
     Active Substance: LACTULOSE
     Indication: Product used for unknown indication
     Route: 048
     Dates: start: 202312
  25. LEVOTHYROXINE [Concomitant]
     Active Substance: LEVOTHYROXINE\LEVOTHYROXINE SODIUM
     Indication: Hypothyroidism
     Dosage: 100.000UG QD
     Route: 042
     Dates: start: 202312
  26. LEVOTHYROXINE [Concomitant]
     Active Substance: LEVOTHYROXINE\LEVOTHYROXINE SODIUM
     Indication: Hypothyroidism
     Dosage: 100.000UG QD
     Route: 048
     Dates: start: 202312
  27. LEVOTHYROXINE [Concomitant]
     Active Substance: LEVOTHYROXINE\LEVOTHYROXINE SODIUM
     Dosage: 100.000UG QD
     Route: 048
     Dates: start: 20231106
  28. LIPTRUZET [Concomitant]
     Active Substance: ATORVASTATIN CALCIUM\EZETIMIBE
     Indication: Product used for unknown indication
     Dosage: 80.000MG QD
     Route: 048
  29. METFORMIN HYDROCHLORIDE [Concomitant]
     Active Substance: METFORMIN HYDROCHLORIDE
     Indication: Diabetes mellitus
     Dosage: 1000.000MG
     Route: 048
     Dates: end: 202404
  30. NICOTINE [Concomitant]
     Active Substance: NICOTINE
     Indication: Product used for unknown indication
     Dosage: 14.000MG
     Route: 062
     Dates: start: 202312
  31. NOVORAPID [Concomitant]
     Active Substance: INSULIN ASPART
     Indication: Diabetes mellitus
     Dosage: 300.000IU
     Route: 058
     Dates: start: 20231229
  32. PLAVIX [Concomitant]
     Active Substance: CLOPIDOGREL BISULFATE
     Indication: Product used for unknown indication
     Dosage: 75.000MG QD
     Route: 048
  33. REPAGLINIDE [Concomitant]
     Active Substance: REPAGLINIDE
     Indication: Diabetes mellitus
     Route: 048
     Dates: start: 202404
  34. SMECTA [Concomitant]
     Active Substance: MONTMORILLONITE
     Indication: Diarrhoea
     Route: 048
     Dates: start: 202401
  35. Solupred [Concomitant]
     Indication: Diarrhoea
     Dosage: QD
     Route: 048
     Dates: start: 20240326
  36. Solupred [Concomitant]
     Dosage: QD
     Route: 048
     Dates: start: 20240319, end: 20240325

REACTIONS (3)
  - Septic shock [Recovered/Resolved]
  - Myocarditis [Recovering/Resolving]
  - Lung disorder [Recovered/Resolved]

NARRATIVE: CASE EVENT DATE: 20231207
